FAERS Safety Report 20911470 (Version 1)
Quarter: 2022Q2

REPORT INFORMATION
  Report Type: Other
  Country: RU (occurrence: RU)
  Receive Date: 20220603
  Receipt Date: 20220603
  Transmission Date: 20220721
  Serious: Yes (Hospitalization)
  Sender: FDA-Public Use
  Company Number: RU-BoehringerIngelheim-2022-BI-172355

PATIENT
  Age: 5 Year

DRUGS (7)
  1. ALTEPLASE [Suspect]
     Active Substance: ALTEPLASE
     Indication: Kawasaki^s disease
     Route: 065
  2. ALTEPLASE [Suspect]
     Active Substance: ALTEPLASE
     Indication: Tricuspid valve incompetence
     Dosage: PROLONGED INFUSION OF 0.7 MG/KG/3 HOURS
     Route: 065
  3. ALTEPLASE [Suspect]
     Active Substance: ALTEPLASE
     Indication: Pulmonary embolism
  4. HEPARIN [Concomitant]
     Active Substance: HEPARIN SODIUM
     Indication: Dialysis device insertion
     Dosage: 20 U/KG/H
  5. HEPARIN [Concomitant]
     Active Substance: HEPARIN SODIUM
     Indication: Kawasaki^s disease
     Dosage: CONTINUED UP TO 32 U/KG/H
  6. HEPARIN [Concomitant]
     Active Substance: HEPARIN SODIUM
     Indication: Tricuspid valve incompetence
     Dosage: MAINTENANCE DOSE OF 23-28 U/KG/H
  7. HEPARIN [Concomitant]
     Active Substance: HEPARIN SODIUM
     Indication: Pulmonary embolism

REACTIONS (3)
  - Mucosal haemorrhage [Recovered/Resolved]
  - Pelvic venous thrombosis [Recovered/Resolved]
  - Off label use [Unknown]
